FAERS Safety Report 18365398 (Version 1)
Quarter: 2020Q4

REPORT INFORMATION
  Report Type: Other
  Country: US (occurrence: US)
  Receive Date: 20201009
  Receipt Date: 20201009
  Transmission Date: 20210114
  Serious: Yes (Death, Life-Threatening, Hospitalization, Other)
  Sender: FDA-Public Use
  Company Number: US-DEXPHARM-20200907

PATIENT
  Age: 74 Year
  Sex: Female

DRUGS (8)
  1. FLUOXETINE [Interacting]
     Active Substance: FLUOXETINE HYDROCHLORIDE
     Route: 048
  2. LISINOPRIL. [Interacting]
     Active Substance: LISINOPRIL
     Route: 048
  3. IBUPROFEN. [Suspect]
     Active Substance: IBUPROFEN
     Route: 048
  4. RANITIDINE. [Interacting]
     Active Substance: RANITIDINE
     Route: 048
  5. PRAVASTATIN. [Interacting]
     Active Substance: PRAVASTATIN
     Route: 048
  6. OMEPRAZOLE. [Interacting]
     Active Substance: OMEPRAZOLE
     Route: 048
  7. ASPIRIN. [Interacting]
     Active Substance: ASPIRIN
     Route: 048
  8. DILTIAZEM. [Interacting]
     Active Substance: DILTIAZEM
     Route: 048

REACTIONS (8)
  - Atrioventricular block second degree [Fatal]
  - Vomiting [Unknown]
  - Pulseless electrical activity [Fatal]
  - Intentional overdose [Fatal]
  - Drug interaction [Fatal]
  - Atrioventricular block first degree [Fatal]
  - Somnolence [Unknown]
  - Bezoar [Unknown]
